FAERS Safety Report 16211329 (Version 1)
Quarter: 2019Q2

REPORT INFORMATION
  Report Type: Spontaneous
  Country: CA (occurrence: CA)
  Receive Date: 20190418
  Receipt Date: 20190418
  Transmission Date: 20190711
  Serious: Yes (Other)
  Sender: FDA-Public Use
  Company Number: CA-AUROBINDO-AUR-APL-2019-020169

PATIENT

DRUGS (3)
  1. LAMOTRIGINE TABLET [Suspect]
     Active Substance: LAMOTRIGINE
     Indication: BIPOLAR DISORDER
     Dosage: 100 MILLIGRAM 1 EVERY 1 DAY
     Route: 048
  2. LAMOTRIGINE TABLET [Suspect]
     Active Substance: LAMOTRIGINE
     Dosage: 50 MILLIGRAM,1 EVERY 1 DAY
     Route: 048
  3. LAMOTRIGINE TABLET [Suspect]
     Active Substance: LAMOTRIGINE
     Dosage: 1 EVERY 1 DAY25 MILLIGRAM
     Route: 048

REACTIONS (14)
  - Neck pain [Unknown]
  - Rash macular [Unknown]
  - Back disorder [Unknown]
  - Rash [Unknown]
  - Confusional state [Unknown]
  - Gastrointestinal infection [Unknown]
  - Erythema [Unknown]
  - Heart rate increased [Unknown]
  - Abdominal pain upper [Unknown]
  - Pyrexia [Unknown]
  - Burning sensation [Unknown]
  - Diarrhoea [Unknown]
  - Arthralgia [Unknown]
  - Coordination abnormal [Unknown]
